FAERS Safety Report 19652321 (Version 2)
Quarter: 2021Q3

REPORT INFORMATION
  Report Type: Spontaneous
  Country: US (occurrence: US)
  Receive Date: 20210803
  Receipt Date: 20210805
  Transmission Date: 20211014
  Serious: Yes (Other)
  Sender: FDA-Public Use
  Company Number: US-PFIZER INC-202100929518

PATIENT
  Age: 69 Year
  Sex: Female

DRUGS (1)
  1. DOXYCYCLINE HYCLATE. [Suspect]
     Active Substance: DOXYCYCLINE HYCLATE
     Indication: SKIN INFECTION
     Dosage: 100 MG, 2X/DAY

REACTIONS (11)
  - Lymphadenopathy [Unknown]
  - Subcutaneous abscess [Unknown]
  - Psychotic disorder [Unknown]
  - Autoimmune disorder [Unknown]
  - Pyuria [Unknown]
  - Infection [Unknown]
  - Rash [Unknown]
  - Illness [Recovering/Resolving]
  - Eye inflammation [Unknown]
  - Cellulitis [Unknown]
  - Visual impairment [Recovering/Resolving]

NARRATIVE: CASE EVENT DATE: 202101
